FAERS Safety Report 7241414-4 (Version None)
Quarter: 2011Q1

REPORT INFORMATION
  Report Type: 
  Country: None (occurrence: None)
  Receive Date: 20110124
  Receipt Date: 20110114
  Transmission Date: 20110831
  Serious: No
  Sender: FDA-Public Use
  Company Number: IE-ROCHE-753995

PATIENT
  Age: 28 Year
  Sex: Female

DRUGS (3)
  1. TAMIFLU [Suspect]
     Route: 065
  2. IBUPROFEN [Concomitant]
  3. PARACETAMOL [Concomitant]

REACTIONS (2)
  - VOMITING [None]
  - EXPIRED DRUG ADMINISTERED [None]
